FAERS Safety Report 8763702 (Version 2)
Quarter: 2012Q4

REPORT INFORMATION
  Report Type: 
  Country: FR (occurrence: FR)
  Receive Date: 20120828
  Receipt Date: 20120910
  Transmission Date: 20130627
  Serious: Yes (Hospitalization)
  Sender: FDA-Public Use
  Company Number: FR-B.I. PHARMACEUTICALS,INC./RIDGEFIELD-2012-FF-01075FF

PATIENT
  Age: 82 Year
  Sex: Male
  Weight: 78 kg

DRUGS (5)
  1. PRADAXA [Suspect]
     Dosage: 220 mg
     Route: 048
     Dates: start: 20120604
  2. TAHOR [Concomitant]
     Route: 048
  3. KARDEGIC [Concomitant]
     Dosage: 75 mg
     Route: 048
  4. CORDARONE [Concomitant]
     Dosage: 200 mg
     Route: 048
  5. IPERTEN [Concomitant]
     Dosage: 10 mg
     Route: 048

REACTIONS (1)
  - Drug ineffective [Recovered/Resolved]
